FAERS Safety Report 23121931 (Version 2)
Quarter: 2023Q4

REPORT INFORMATION
  Report Type: Report from Study
  Country: US (occurrence: US)
  Receive Date: 20231030
  Receipt Date: 20231120
  Transmission Date: 20240109
  Serious: No
  Sender: FDA-Public Use
  Company Number: US-SANOFI-01815613

PATIENT
  Age: 77 Year
  Sex: Female

DRUGS (3)
  1. DUPILUMAB [Suspect]
     Active Substance: DUPILUMAB
     Indication: Psoriasis
     Dosage: 600 MG, 1X
     Route: 058
  2. DUPILUMAB [Suspect]
     Active Substance: DUPILUMAB
     Indication: Eczema
     Dosage: 300 MG, QOW
     Route: 058
     Dates: start: 20231005, end: 20231031
  3. DUPILUMAB [Suspect]
     Active Substance: DUPILUMAB
     Indication: Dermatitis atopic

REACTIONS (9)
  - Skin haemorrhage [Unknown]
  - Scratch [Unknown]
  - Pain [Unknown]
  - Condition aggravated [Unknown]
  - Drug ineffective [Unknown]
  - Pruritus [Unknown]
  - Herpes zoster [Unknown]
  - Dermatitis atopic [Unknown]
  - Off label use [Unknown]

NARRATIVE: CASE EVENT DATE: 20231001
